FAERS Safety Report 7817331-5 (Version None)
Quarter: 2011Q4

REPORT INFORMATION
  Report Type: 
  Country: None (occurrence: None)
  Receive Date: 20111017
  Receipt Date: 20111010
  Transmission Date: 20120403
  Serious: Yes (Other)
  Sender: FDA-Public Use
  Company Number: US-PFIZER INC-2011243295

PATIENT

DRUGS (1)
  1. PREMARIN [Suspect]

REACTIONS (1)
  - GASTROINTESTINAL TUBE INSERTION [None]
